FAERS Safety Report 13278444 (Version 1)
Quarter: 2017Q1

REPORT INFORMATION
  Report Type: Spontaneous
  Country: KR (occurrence: KR)
  Receive Date: 20170228
  Receipt Date: 20170228
  Transmission Date: 20170428
  Serious: Yes (Other)
  Sender: FDA-Public Use
  Company Number: KR-BAYER-2017-037021

PATIENT
  Age: 58 Year
  Sex: Female

DRUGS (2)
  1. NEXAVAR [Suspect]
     Active Substance: SORAFENIB
     Dosage: UNK
     Route: 048
     Dates: start: 20160120
  2. LENVATINIB [Concomitant]
     Active Substance: LENVATINIB
     Dosage: UNK
     Dates: start: 20161124

REACTIONS (1)
  - Metastases to bone [None]
